FAERS Safety Report 9821268 (Version 3)
Quarter: 2015Q3

REPORT INFORMATION
  Report Type: Spontaneous
  Country: US (occurrence: US)
  Receive Date: 20140116
  Receipt Date: 20150806
  Transmission Date: 20151125
  Serious: No
  Sender: FDA-Public Use
  Company Number: US-GILEAD-2010-0033552

PATIENT
  Age: 74 Year
  Sex: Female
  Weight: 100.7 kg

DRUGS (16)
  1. TAMBOCOR [Concomitant]
     Active Substance: FLECAINIDE ACETATE
  2. LETAIRIS [Suspect]
     Active Substance: AMBRISENTAN
     Indication: SLEEP APNOEA SYNDROME
  3. LISINOPRIL. [Concomitant]
     Active Substance: LISINOPRIL
  4. HUMULIN NOS [Concomitant]
     Active Substance: INSULIN HUMAN
  5. ALENDRONATE [Concomitant]
     Active Substance: ALENDRONATE SODIUM
  6. NEXIUM [Concomitant]
     Active Substance: ESOMEPRAZOLE MAGNESIUM
  7. TEKTURNA HCT [Concomitant]
     Active Substance: ALISKIREN HEMIFUMARATE\HYDROCHLOROTHIAZIDE
  8. WARFARIN SODIUM. [Concomitant]
     Active Substance: WARFARIN SODIUM
  9. CALCIUM/VITAMIN D [Concomitant]
     Active Substance: CALCIUM\VITAMIN D
  10. LETAIRIS [Suspect]
     Active Substance: AMBRISENTAN
     Indication: PULMONARY HYPERTENSION
     Route: 048
     Dates: start: 20090224
  11. TOPROL XL [Concomitant]
     Active Substance: METOPROLOL SUCCINATE
  12. ALDACTONE [Concomitant]
     Active Substance: SPIRONOLACTONE
  13. NASONEX [Concomitant]
     Active Substance: MOMETASONE FUROATE
  14. DIGOXIN. [Concomitant]
     Active Substance: DIGOXIN
  15. GLUCOVANCE [Concomitant]
     Active Substance: GLYBURIDE\METFORMIN HYDROCHLORIDE
  16. ZYRTEC [Concomitant]
     Active Substance: CETIRIZINE HYDROCHLORIDE

REACTIONS (2)
  - Dyspnoea [Unknown]
  - Feeling abnormal [Unknown]
